FAERS Safety Report 10574003 (Version 2)
Quarter: 2015Q1

REPORT INFORMATION
  Report Type: Spontaneous
  Country: US (occurrence: US)
  Receive Date: 20141110
  Receipt Date: 20150112
  Transmission Date: 20150720
  Serious: Yes (Death, Life-Threatening, Hospitalization, Other)
  Sender: FDA-Public Use
  Company Number: US-MERCK-1411USA002012

PATIENT
  Sex: Male
  Weight: 87.53 kg

DRUGS (3)
  1. JANUMET [Suspect]
     Active Substance: METFORMIN HYDROCHLORIDE\SITAGLIPTIN PHOSPHATE
     Indication: TYPE 2 DIABETES MELLITUS
     Dosage: 50MG/1000MG, BID
     Route: 048
     Dates: start: 20101224, end: 20110613
  2. JANUVIA [Suspect]
     Active Substance: SITAGLIPTIN PHOSPHATE
     Indication: TYPE 2 DIABETES MELLITUS
     Dosage: 50 MG, QD
     Route: 048
     Dates: start: 20110524, end: 20120420
  3. JANUVIA [Suspect]
     Active Substance: SITAGLIPTIN PHOSPHATE
     Dosage: 100 MG, QD
     Route: 048
     Dates: start: 20110926

REACTIONS (44)
  - Cardiac resynchronisation therapy [Unknown]
  - Splenic granuloma [Unknown]
  - Hiatus hernia [Unknown]
  - Stress [Unknown]
  - Pancreatic carcinoma metastatic [Unknown]
  - Ischaemic cardiomyopathy [Unknown]
  - Inguinal hernia [Unknown]
  - Inguinal hernia repair [Unknown]
  - Chest pain [Unknown]
  - Eczema [Unknown]
  - Dyspnoea [Unknown]
  - Diverticulitis [Unknown]
  - Rib fracture [Unknown]
  - Hypokalaemia [Unknown]
  - Hypertension [Unknown]
  - Metastases to lymph nodes [Unknown]
  - Cholecystitis [Unknown]
  - Hyperlipidaemia [Unknown]
  - Transient ischaemic attack [Unknown]
  - Cataract [Unknown]
  - Dental operation [Unknown]
  - Cataract operation [Unknown]
  - Gastrointestinal haemorrhage [Unknown]
  - Peripheral venous disease [Recovering/Resolving]
  - Oedema peripheral [Recovering/Resolving]
  - Death [Fatal]
  - Cardiac pacemaker insertion [Unknown]
  - Hypoacusis [Unknown]
  - Anaemia [Unknown]
  - Granulomatous liver disease [Unknown]
  - Barrett^s oesophagus [Unknown]
  - Neutropenia [Unknown]
  - Weight increased [Unknown]
  - Bone disorder [Unknown]
  - Diverticulum intestinal [Unknown]
  - Bundle branch block left [Unknown]
  - Hypovolaemia [Unknown]
  - Chronic kidney disease [Unknown]
  - Gastrointestinal ulcer [Unknown]
  - Diabetes mellitus inadequate control [Unknown]
  - Renal vessel disorder [Unknown]
  - Sleep apnoea syndrome [Unknown]
  - Cardiac failure congestive [Unknown]
  - Aortic arteriosclerosis [Unknown]

NARRATIVE: CASE EVENT DATE: 2011
